FAERS Safety Report 25807661 (Version 3)
Quarter: 2025Q4

REPORT INFORMATION
  Report Type: Spontaneous
  Country: US (occurrence: US)
  Receive Date: 20250916
  Receipt Date: 20251007
  Transmission Date: 20260117
  Serious: No
  Sender: PFIZER
  Company Number: US-PFIZER INC-202500182400

PATIENT
  Age: 73 Year
  Sex: Female
  Weight: 61.224 kg

DRUGS (5)
  1. PAXLOVID [Suspect]
     Active Substance: NIRMATRELVIR\RITONAVIR
     Indication: COVID-19 treatment
     Dosage: UNK, 2X/DAY (EVERY 12 HOURS)
     Route: 048
     Dates: start: 202509
  2. METOPROLOL [Concomitant]
     Active Substance: METOPROLOL
     Indication: Cardiac disorder
     Dosage: 50 MG, 1X/DAY
  3. PANTOPRAZOLE [Concomitant]
     Active Substance: PANTOPRAZOLE
     Indication: Gastrooesophageal reflux prophylaxis
     Dosage: 10 MG, 1X/DAY
  4. EZETIMIBE [Concomitant]
     Active Substance: EZETIMIBE
     Indication: Blood cholesterol abnormal
     Dosage: 20 MG, 1X/DAY
  5. VITAMIN D2 [Concomitant]
     Active Substance: ERGOCALCIFEROL
     Dosage: 50000 MG, WEEKLY

REACTIONS (12)
  - Throat irritation [Recovered/Resolved]
  - Abdominal pain upper [Recovered/Resolved with Sequelae]
  - Diarrhoea [Recovered/Resolved with Sequelae]
  - Dysgeusia [Recovered/Resolved]
  - Ageusia [Recovered/Resolved]
  - Paraesthesia oral [Recovered/Resolved]
  - Gastrooesophageal reflux disease [Recovered/Resolved with Sequelae]
  - Nausea [Recovered/Resolved]
  - Weight decreased [Recovered/Resolved]
  - Fatigue [Recovered/Resolved]
  - Retching [Recovered/Resolved]
  - Chest pain [Recovered/Resolved with Sequelae]

NARRATIVE: CASE EVENT DATE: 20250901
